FAERS Safety Report 5445839-9 (Version None)
Quarter: 2007Q3

REPORT INFORMATION
  Report Type: 
  Country: None (occurrence: None)
  Receive Date: 20070904
  Receipt Date: 20070825
  Transmission Date: 20080115
  Serious: Yes (Hospitalization)
  Sender: FDA-Public Use
  Company Number: GXKR2007DE07227

PATIENT
  Age: 14 Year
  Sex: Female

DRUGS (1)
  1. PROMETHAZINE [Suspect]
     Dosage: 100 MG, ONCE/SINGLE, ORAL
     Route: 048
     Dates: start: 20070825, end: 20070825

REACTIONS (5)
  - ACCIDENTAL DRUG INTAKE BY CHILD [None]
  - AGGRESSION [None]
  - COORDINATION ABNORMAL [None]
  - DYSARTHRIA [None]
  - HALLUCINATION [None]
